FAERS Safety Report 15566321 (Version 3)
Quarter: 2019Q1

REPORT INFORMATION
  Report Type: Report from Study
  Country: US (occurrence: US)
  Receive Date: 20181030
  Receipt Date: 20190110
  Transmission Date: 20190417
  Serious: Yes (Death)
  Sender: FDA-Public Use
  Company Number: US-PFIZER INC-2018440332

PATIENT
  Age: 72 Year
  Sex: Male
  Weight: 67.4 kg

DRUGS (22)
  1. DOCUSATE SODIUM. [Concomitant]
     Active Substance: DOCUSATE SODIUM
     Indication: CONSTIPATION
     Dosage: 100 MG, 3X/DAY
     Route: 048
     Dates: start: 20180926
  2. FERROUS GLUCONATE [Concomitant]
     Active Substance: FERROUS GLUCONATE
     Indication: SUPPLEMENTATION THERAPY
     Dosage: 648 MG, EVERY OTHER DAY
     Route: 048
     Dates: start: 20180917
  3. TAMSULOSIN [Concomitant]
     Active Substance: TAMSULOSIN
     Indication: GENITOURINARY SYMPTOM
     Dosage: 0.4 MG, EVERY 24 HOURS
     Route: 048
     Dates: start: 20180926
  4. AMLODIPINE [Concomitant]
     Active Substance: AMLODIPINE BESYLATE
     Indication: THROMBOSIS
     Dosage: 5 MG, EVERY 24 HOURS
     Route: 048
     Dates: start: 20180926
  5. SENNA [Concomitant]
     Active Substance: SENNA LEAF\SENNOSIDES\SENNOSIDES A AND B
     Indication: CONSTIPATION
     Dosage: 2 TABLETS, ONCE A DAY
     Route: 048
     Dates: start: 20180926
  6. CRIZOTINIB [Suspect]
     Active Substance: CRIZOTINIB
     Indication: NON-SMALL CELL LUNG CANCER
     Dosage: 250 MG, 2X/DAY
     Route: 048
     Dates: start: 20180403
  7. OXYCODONE [Concomitant]
     Active Substance: OXYCODONE
     Indication: BREAKTHROUGH PAIN
     Dosage: 5 MG, EVERY 4 HOURS
     Route: 048
     Dates: start: 20180926
  8. GABAPENTIN. [Concomitant]
     Active Substance: GABAPENTIN
     Indication: PAIN
     Dosage: 300 MG, EVERY 8 HOURS
     Route: 048
     Dates: start: 20180926
  9. SUCRALFATE. [Concomitant]
     Active Substance: SUCRALFATE
     Indication: GASTROOESOPHAGEAL REFLUX DISEASE
     Dosage: 10 ML, 3X/DAY
     Route: 048
     Dates: start: 20180926
  10. ALUMINIUM HYDROXIDE/MAGNESIUM HYDROXIDE/SIMETICONE [Concomitant]
     Indication: ABDOMINAL DISCOMFORT
     Dosage: 30 ML, EVERY 6 HRS
     Route: 048
     Dates: start: 20180905
  11. ENOXAPARIN [Concomitant]
     Active Substance: ENOXAPARIN
     Indication: THROMBOSIS
     Dosage: 60 MG, EVERY 12 HOURS
     Route: 058
     Dates: start: 20180926
  12. LEVALBUTEROL. [Concomitant]
     Active Substance: LEVALBUTEROL
     Indication: DYSPNOEA
     Dosage: 3 ML, EVERY 6 HOURS
     Route: 055
     Dates: start: 20180926
  13. ALUMINIUM HYDROXIDE/MAGNESIUM HYDROXIDE/SIMETICONE [Concomitant]
     Indication: GASTROOESOPHAGEAL REFLUX DISEASE
  14. FENTANYL. [Concomitant]
     Active Substance: FENTANYL
     Indication: PAIN
     Dosage: 12MCG/HR EVERY 72 HOURS
     Route: 062
     Dates: start: 20180926
  15. NYSTATIN. [Concomitant]
     Active Substance: NYSTATIN
     Indication: FUNGAL INFECTION
     Dosage: 5 ML, 3X/DAY
     Route: 048
     Dates: start: 20180926
  16. PANTOPRAZOLE [Concomitant]
     Active Substance: PANTOPRAZOLE
     Indication: PROPHYLAXIS
     Dosage: 40 MG, EVERY 12 HOURS
     Route: 048
     Dates: start: 20180926
  17. MAGNESIUM HYDROXIDE. [Concomitant]
     Active Substance: MAGNESIUM HYDROXIDE
     Indication: SUPPLEMENTATION THERAPY
     Dosage: 30 ML, EVERY 6 HRS
     Route: 048
     Dates: start: 20180905
  18. ACETAMINOPHEN. [Concomitant]
     Active Substance: ACETAMINOPHEN
     Indication: ANALGESIC THERAPY
     Dosage: 2 TABS 325MG, EVERY 6 HOURS
     Route: 048
     Dates: start: 20180926
  19. CLOTRIMAZOLE. [Concomitant]
     Active Substance: CLOTRIMAZOLE
     Indication: ANTIFUNGAL TREATMENT
     Dosage: 10 MG, 4X/DAY
     Route: 048
     Dates: start: 20180926
  20. IPRATROPIUM [Concomitant]
     Active Substance: IPRATROPIUM
     Indication: DYSPNOEA
     Dosage: 2.5 ML, EVERY 6 HOURS
     Route: 055
     Dates: start: 20180926
  21. BENZOCAINE/MENTHOL [Concomitant]
     Indication: OROPHARYNGEAL PAIN
     Dosage: TOPICAL , LOZENGE EVERY 2 HOURS
     Route: 048
     Dates: start: 20180926
  22. LEVOFLOXACIN. [Concomitant]
     Active Substance: LEVOFLOXACIN
     Indication: ANTIBIOTIC THERAPY
     Dosage: 750 MG, EVERY 24 HOURS
     Route: 048
     Dates: start: 20180926

REACTIONS (3)
  - Enterocolitis infectious [Fatal]
  - Respiratory arrest [Fatal]
  - Pneumonitis [Fatal]

NARRATIVE: CASE EVENT DATE: 20181022
